FAERS Safety Report 4433568-X (Version None)
Quarter: 2004Q3

REPORT INFORMATION
  Report Type: 
  Country: None (occurrence: None)
  Receive Date: 20040824
  Receipt Date: 20040811
  Transmission Date: 20050211
  Serious: Yes (Other)
  Sender: FDA-Public Use
  Company Number: HQWYE213012AUG04

PATIENT
  Age: 56 Year
  Sex: Female
  Weight: 72.64 kg

DRUGS (11)
  1. EFFEXOR XR [Suspect]
     Indication: DEPRESSION
     Dosage: 150 MG 1 X PER 1 DAY ORAL
     Route: 048
     Dates: start: 20040715, end: 20040723
  2. DURAGESIC [Suspect]
     Indication: SPINAL COLUMN STENOSIS
     Dosage: 50 MCG PATCH
     Dates: start: 20040715
  3. XANAX [Concomitant]
  4. PREVACID [Concomitant]
  5. HYOSCYAMINE (HYOSCYAMINE) [Concomitant]
  6. PREDNISONE TAB [Concomitant]
  7. OXYCONTIN [Concomitant]
  8. WARFARIN (WARFARIN) [Concomitant]
  9. NASACORT [Concomitant]
  10. HYZAAR [Concomitant]
  11. KEFLEX [Concomitant]

REACTIONS (8)
  - ANXIETY [None]
  - DEHYDRATION [None]
  - DRUG HYPERSENSITIVITY [None]
  - DYSPNOEA [None]
  - HEADACHE [None]
  - HEART RATE DECREASED [None]
  - KIDNEY INFECTION [None]
  - PRURITUS [None]
